FAERS Safety Report 9809051 (Version 1)
Quarter: 2014Q1

REPORT INFORMATION
  Report Type: Spontaneous
  Country: US (occurrence: US)
  Receive Date: 20140110
  Receipt Date: 20140110
  Transmission Date: 20141002
  Serious: No
  Sender: FDA-Public Use
  Company Number: US-GE HEALTHCARE MEDICAL DIAGNOSTICS-OPTN-PR-1312S-0007

PATIENT
  Age: 28 Year
  Sex: Female

DRUGS (4)
  1. OPTISON [Suspect]
     Indication: CHEST PAIN
     Route: 042
     Dates: start: 20131212, end: 20131212
  2. OPTISON [Suspect]
     Indication: CHEST DISCOMFORT
  3. OPTISON [Suspect]
     Indication: CHEST DISCOMFORT
  4. OPTISON [Suspect]
     Indication: DIAGNOSTIC PROCEDURE

REACTIONS (3)
  - Dyspnoea [Recovered/Resolved]
  - Chest discomfort [Recovered/Resolved]
  - Back pain [Recovered/Resolved]
